FAERS Safety Report 8158781-X (Version None)
Quarter: 2012Q1

REPORT INFORMATION
  Report Type: 
  Country: None (occurrence: None)
  Receive Date: 20120223
  Receipt Date: 20120215
  Transmission Date: 20120608
  Serious: Yes (Hospitalization, Other)
  Sender: FDA-Public Use
  Company Number: JP-ASTELLAS-2011US007871

PATIENT
  Sex: Female
  Weight: 62 kg

DRUGS (11)
  1. GEMCITABINE [Suspect]
     Indication: PANCREATIC CARCINOMA
     Dosage: 1000 MG/M2, WEEKLY
     Route: 041
     Dates: start: 20110811, end: 20110822
  2. REBAMIPIDE [Concomitant]
     Indication: PRODUCT USED FOR UNKNOWN INDICATION
     Dosage: 100 MG, TID
     Route: 048
     Dates: start: 20110726, end: 20111101
  3. OXYCODONE HCL [Concomitant]
     Indication: PRODUCT USED FOR UNKNOWN INDICATION
     Dosage: 2.5 MG, UNKNOWN/D
     Route: 048
     Dates: start: 20110915, end: 20111101
  4. GEMCITABINE [Suspect]
     Dosage: 625 MG/M2, WEEKLY
     Route: 041
     Dates: start: 20110905, end: 20110912
  5. ERLOTINIB HYDROCHLORIDE [Suspect]
     Indication: PANCREATIC CARCINOMA
     Dosage: 100 MG, UID/QD
     Route: 048
     Dates: start: 20110811, end: 20111030
  6. GEMCITABINE [Suspect]
     Dosage: 625 MG/M2, WEEKLY
     Route: 041
     Dates: start: 20110926, end: 20111010
  7. LOXOPROFEN [Concomitant]
     Indication: PRODUCT USED FOR UNKNOWN INDICATION
     Dosage: 60 MG, TID
     Route: 048
     Dates: start: 20110726, end: 20111101
  8. FENTORA [Concomitant]
     Indication: PRODUCT USED FOR UNKNOWN INDICATION
     Dosage: 1 MG, UID/QD
     Route: 062
     Dates: start: 20110915, end: 20111101
  9. GEMCITABINE [Suspect]
     Dosage: 625 MG/M2, WEEKLY
     Route: 041
     Dates: start: 20111024, end: 20111024
  10. RABEPRAZOLE SODIUM [Concomitant]
     Indication: PRODUCT USED FOR UNKNOWN INDICATION
     Dosage: 10 MG, UID/QD
     Route: 048
     Dates: start: 20110726, end: 20111101
  11. HUMALOG [Concomitant]
     Indication: PRODUCT USED FOR UNKNOWN INDICATION
     Dosage: 4 DF, UID/QD
     Route: 058
     Dates: start: 20110726, end: 20111101

REACTIONS (11)
  - PETIT MAL EPILEPSY [None]
  - NAUSEA [None]
  - DECREASED APPETITE [None]
  - CONSTIPATION [None]
  - GASTROINTESTINAL HAEMORRHAGE [None]
  - STOMATITIS [None]
  - ANAEMIA [None]
  - ILEUS [None]
  - NEOPLASM MALIGNANT [None]
  - METASTASES TO PERITONEUM [None]
  - MALAISE [None]
